FAERS Safety Report 7597150-8 (Version None)
Quarter: 2011Q3

REPORT INFORMATION
  Report Type: 
  Country: None (occurrence: None)
  Receive Date: 20110708
  Receipt Date: 20100517
  Transmission Date: 20111222
  Serious: No
  Sender: FDA-Public Use
  Company Number: US-GLAXOSMITHKLINE-A0860009A

PATIENT
  Age: 74 Year
  Sex: Female

DRUGS (3)
  1. FLOVENT [Suspect]
     Indication: CHRONIC OBSTRUCTIVE PULMONARY DISEASE
     Dosage: 2PUFF TWICE PER DAY
     Route: 055
     Dates: start: 20100101
  2. ASPIRIN [Concomitant]
  3. ALBUTEROL SULFATE AUTOHALER [Concomitant]

REACTIONS (3)
  - INFECTION [None]
  - DYSPHONIA [None]
  - OROPHARYNGEAL PAIN [None]
